FAERS Safety Report 8826494 (Version 1)
Quarter: 2012Q4

REPORT INFORMATION
  Report Type: 
  Country: GT (occurrence: GT)
  Receive Date: 20121008
  Receipt Date: 20121008
  Transmission Date: 20130627
  Serious: Yes (Death, Other)
  Sender: FDA-Public Use
  Company Number: PHHY2012GT087067

PATIENT
  Sex: Female

DRUGS (2)
  1. GLIVEC [Suspect]
     Indication: CHRONIC MYELOID LEUKAEMIA
     Dosage: 400 mg, UNK
     Route: 048
  2. GLIVEC [Suspect]
     Dosage: 800 mg, Daily
     Route: 048
     Dates: start: 20111121

REACTIONS (3)
  - Hypovolaemic shock [Fatal]
  - Diarrhoea [Unknown]
  - Abdominal pain [Unknown]
